FAERS Safety Report 14569418 (Version 1)
Quarter: 2018Q1

REPORT INFORMATION
  Report Type: Spontaneous
  Country: US (occurrence: US)
  Receive Date: 20180223
  Receipt Date: 20180223
  Transmission Date: 20180509
  Serious: Yes (Other)
  Sender: FDA-Public Use
  Company Number: PHHY2018US030642

PATIENT
  Age: 27 Year
  Sex: Female

DRUGS (2)
  1. BUPROPION. [Suspect]
     Active Substance: BUPROPION
     Indication: PRODUCT USED FOR UNKNOWN INDICATION
     Dosage: 30 DF, (150 MG)
     Route: 065
  2. ALPRAZOLAM. [Suspect]
     Active Substance: ALPRAZOLAM
     Indication: PRODUCT USED FOR UNKNOWN INDICATION
     Dosage: 30 DF, (0.5 MG)
     Route: 065

REACTIONS (11)
  - Mental status changes [Unknown]
  - Intentional overdose [Unknown]
  - Tachypnoea [Unknown]
  - Agitation [Unknown]
  - Skin lesion [Recovering/Resolving]
  - Rash [Recovering/Resolving]
  - Tremor [Unknown]
  - Tachycardia [Unknown]
  - Erythema multiforme [Recovering/Resolving]
  - Macule [Recovering/Resolving]
  - Suicide attempt [Unknown]
